FAERS Safety Report 9926861 (Version 2)
Quarter: 2014Q1

REPORT INFORMATION
  Report Type: Spontaneous
  Country: US (occurrence: US)
  Receive Date: 20140226
  Receipt Date: 20140226
  Transmission Date: 20141002
  Serious: No
  Sender: FDA-Public Use
  Company Number: US-AMGEN-USASP2013075549

PATIENT
  Age: 51 Year
  Sex: Male
  Weight: 107.4 kg

DRUGS (3)
  1. ENBREL [Suspect]
     Indication: RHEUMATOID ARTHRITIS
     Dosage: 50 MG, QWK
     Route: 058
     Dates: start: 201107, end: 201311
  2. TRAZODONE [Concomitant]
     Indication: ANXIETY
     Dosage: 50 UNK, QHS
     Route: 048
     Dates: start: 2006
  3. KLONOPIN [Concomitant]
     Indication: ANXIETY
     Dosage: 1 UNK, BID
     Route: 048
     Dates: start: 2006

REACTIONS (2)
  - Influenza like illness [Not Recovered/Not Resolved]
  - Drug intolerance [Not Recovered/Not Resolved]
